FAERS Safety Report 14918164 (Version 1)
Quarter: 2018Q2

REPORT INFORMATION
  Report Type: Report from Study
  Country: US (occurrence: US)
  Receive Date: 20180521
  Receipt Date: 20180521
  Transmission Date: 20180711
  Serious: Yes (Other)
  Sender: FDA-Public Use
  Company Number: US-BAYER-2018-091635

PATIENT
  Age: 54 Year
  Sex: Female

DRUGS (5)
  1. ACETYLSALICYLIC ACID (ASA) [Suspect]
     Active Substance: ASPIRIN
     Dosage: 325 LOADING DOSE
  2. ACETYLSALICYLIC ACID({=100 MG) [Suspect]
     Active Substance: ASPIRIN
     Dosage: 81 MG/D, FOR AT LEAST MONTHS
  3. HEPARIN [Suspect]
     Active Substance: HEPARIN SODIUM
  4. TICAGRELOR. [Suspect]
     Active Substance: TICAGRELOR
     Dosage: 90 MG, BID
  5. CLOPIDOGREL [Suspect]
     Active Substance: CLOPIDOGREL BISULFATE
     Dosage: 75 MG, QD

REACTIONS (4)
  - Product use in unapproved indication [None]
  - Retroperitoneal haematoma [Recovered/Resolved]
  - Off label use [None]
  - Hypotension [Recovered/Resolved]
